FAERS Safety Report 8600013-X (Version None)
Quarter: 2012Q3

REPORT INFORMATION
  Report Type: 
  Country: None (occurrence: None)
  Receive Date: 20120816
  Receipt Date: 20120808
  Transmission Date: 20120928
  Serious: Yes (Hospitalization)
  Sender: FDA-Public Use
  Company Number: JP-ABBOTT-12P-087-0964012-00

PATIENT
  Age: 59 Year
  Sex: Female

DRUGS (7)
  1. TIPEPIDINE HIBENZATE [Concomitant]
     Indication: SINUSITIS
     Dosage: 15 CC DAILY
     Route: 048
     Dates: start: 20120629, end: 20120704
  2. SHIN'ISEIHAITO [Concomitant]
     Indication: SINUSITIS
     Dosage: 7.5 G DAILY
     Route: 048
     Dates: start: 20120629, end: 20120704
  3. L-CARBOCYSTEINE [Concomitant]
     Indication: SINUSITIS
     Dosage: 10 CC DAILY
     Route: 048
     Dates: start: 20120629, end: 20120704
  4. BROCIN [Concomitant]
     Indication: SINUSITIS
     Dosage: 10 CC DAILY
     Route: 048
     Dates: start: 20120629, end: 20120704
  5. COUGHCODE [Suspect]
     Indication: SINUSITIS
     Dosage: 3 TABLETS DAILY
     Route: 048
     Dates: start: 20120629, end: 20120704
  6. CLARITHROMYCIN [Suspect]
     Indication: SINUSITIS
     Route: 048
     Dates: start: 20120629, end: 20120704
  7. SODIUM GUALENATE [Concomitant]
     Indication: SINUSITIS
     Dosage: 1.5 G DAILY
     Route: 048
     Dates: start: 20120629, end: 20120704

REACTIONS (1)
  - AGRANULOCYTOSIS [None]
